FAERS Safety Report 7991233-6 (Version None)
Quarter: 2011Q4

REPORT INFORMATION
  Report Type: 
  Country: None (occurrence: None)
  Receive Date: 20111219
  Receipt Date: 20111207
  Transmission Date: 20120403
  Serious: Yes (Other)
  Sender: FDA-Public Use
  Company Number: ZA-GLAXOSMITHKLINE-B0747075A

PATIENT
  Sex: Female

DRUGS (5)
  1. KEPPRA [Suspect]
     Indication: PRODUCT USED FOR UNKNOWN INDICATION
     Dosage: 250MG TWICE PER DAY
     Route: 065
     Dates: start: 20080101
  2. FERROUS FORTE [Concomitant]
     Route: 065
  3. LAMICTAL [Suspect]
     Indication: BIPOLAR I DISORDER
     Dosage: 150MG TWICE PER DAY
     Route: 065
     Dates: start: 20080101
  4. ALENDRONATE SODIUM [Concomitant]
     Route: 065
  5. SIMVASTATIN [Concomitant]
     Route: 065

REACTIONS (2)
  - WEIGHT DECREASED [None]
  - MUSCLE ATROPHY [None]
